FAERS Safety Report 6753001-2 (Version None)
Quarter: 2010Q2

REPORT INFORMATION
  Report Type: 
  Country: None (occurrence: None)
  Receive Date: 20100602
  Receipt Date: 20100602
  Transmission Date: 20101027
  Serious: Yes (Other)
  Sender: FDA-Public Use
  Company Number: None

PATIENT
  Age: 34 Year
  Sex: Female

DRUGS (1)
  1. ISOVUE-300 [Suspect]
     Dosage: 100ML 2ML/5CC AC
     Dates: start: 20100429

REACTIONS (3)
  - HYPERSENSITIVITY [None]
  - SNEEZING [None]
  - THROAT IRRITATION [None]
